FAERS Safety Report 22277967 (Version 1)
Quarter: 2023Q2

REPORT INFORMATION
  Report Type: Report from Study
  Country: AT (occurrence: AT)
  Receive Date: 20230503
  Receipt Date: 20230503
  Transmission Date: 20230722
  Serious: Yes (Hospitalization)
  Sender: FDA-Public Use
  Company Number: AT-ABBVIE-4746417

PATIENT
  Sex: Male

DRUGS (1)
  1. HUMIRA [Suspect]
     Active Substance: ADALIMUMAB
     Indication: Axial spondyloarthritis
     Route: 058

REACTIONS (8)
  - Headache [Recovering/Resolving]
  - Weight decreased [Not Recovered/Not Resolved]
  - Mental disorder [Not Recovered/Not Resolved]
  - Mood altered [Unknown]
  - Arthralgia [Not Recovered/Not Resolved]
  - Social anxiety disorder [Unknown]
  - Initial insomnia [Recovering/Resolving]
  - Joint range of motion decreased [Not Recovered/Not Resolved]

NARRATIVE: CASE EVENT DATE: 20230101
